FAERS Safety Report 7820725-5 (Version None)
Quarter: 2011Q4

REPORT INFORMATION
  Report Type: 
  Country: None (occurrence: None)
  Receive Date: 20111018
  Receipt Date: 20111003
  Transmission Date: 20120403
  Serious: Yes (Other)
  Sender: FDA-Public Use
  Company Number: NL-WATSON-2011-16165

PATIENT
  Age: 37 Year
  Sex: Male

DRUGS (4)
  1. PREDNISONE [Suspect]
     Indication: IMMUNOSUPPRESSION
     Dosage: UNKNOWN
     Route: 065
  2. PREDNISONE [Suspect]
     Indication: CROHN'S DISEASE
  3. AZATHIOPRINE [Suspect]
     Indication: IMMUNOSUPPRESSION
     Dosage: 200 MG, DAILY
     Route: 065
  4. AZATHIOPRINE [Suspect]
     Indication: CROHN'S DISEASE

REACTIONS (1)
  - DIFFUSE LARGE B-CELL LYMPHOMA [None]
